FAERS Safety Report 6874987-1 (Version None)
Quarter: 2010Q2

REPORT INFORMATION
  Report Type: 
  Country: None (occurrence: None)
  Receive Date: 20100616
  Receipt Date: 20090407
  Transmission Date: 20101027
  Serious: Yes (Other)
  Sender: FDA-Public Use
  Company Number: 1000005721

PATIENT
  Age: 81 Year
  Sex: Female

DRUGS (7)
  1. NAMENDA [Suspect]
     Indication: DEMENTIA ALZHEIMER'S TYPE
     Dosage: 5 MG (5 MG,1 IN 1 D),ORAL ; 10 MG (5 MG,2 IN 1 D),ORAL ; 15 MG, ORAL
     Route: 048
     Dates: start: 20090310, end: 20090316
  2. NAMENDA [Suspect]
     Indication: DEMENTIA ALZHEIMER'S TYPE
     Dosage: 5 MG (5 MG,1 IN 1 D),ORAL ; 10 MG (5 MG,2 IN 1 D),ORAL ; 15 MG, ORAL
     Route: 048
     Dates: start: 20090317, end: 20090323
  3. NAMENDA [Suspect]
     Indication: DEMENTIA ALZHEIMER'S TYPE
     Dosage: 5 MG (5 MG,1 IN 1 D),ORAL ; 10 MG (5 MG,2 IN 1 D),ORAL ; 15 MG, ORAL
     Route: 048
     Dates: start: 20090324, end: 20090330
  4. NAMENDA [Suspect]
     Indication: DEMENTIA ALZHEIMER'S TYPE
     Dosage: 20 MG (10 MG,2 IN 1 D),ORAL
     Route: 048
     Dates: start: 20090331, end: 20090406
  5. MELOXICAM [Suspect]
     Indication: ARTHRALGIA
  6. ARICEPT [Concomitant]
  7. EYE DROPS (NOS) [Concomitant]

REACTIONS (1)
  - BLOOD PRESSURE INCREASED [None]
